FAERS Safety Report 6838240-4 (Version None)
Quarter: 2010Q3

REPORT INFORMATION
  Report Type: 
  Country: None (occurrence: None)
  Receive Date: 20100713
  Receipt Date: 20070606
  Transmission Date: 20110219
  Serious: No
  Sender: FDA-Public Use
  Company Number: US-PFIZER INC-2007047485

PATIENT
  Sex: Male
  Weight: 104.3 kg

DRUGS (11)
  1. CHANTIX [Suspect]
     Indication: SMOKING CESSATION THERAPY
     Dates: start: 20070521, end: 20070604
  2. BENAZEPRIL HYDROCHLORIDE [Suspect]
     Indication: BLOOD PRESSURE
     Dates: start: 20070521, end: 20070101
  3. MELOXICAM [Concomitant]
     Indication: ANTIINFLAMMATORY THERAPY
  4. OMEPRAZOLE [Concomitant]
  5. VYTORIN [Concomitant]
  6. METFORMIN [Concomitant]
  7. ACTOS [Concomitant]
  8. LANTUS [Concomitant]
  9. WELLBUTRIN [Concomitant]
  10. LEXAPRO [Concomitant]
  11. ACETYLSALICYLIC ACID [Concomitant]

REACTIONS (1)
  - NAUSEA [None]
